FAERS Safety Report 12641700 (Version 2)
Quarter: 2017Q1

REPORT INFORMATION
  Report Type: Spontaneous
  Country: FR (occurrence: FR)
  Receive Date: 20160810
  Receipt Date: 20170209
  Transmission Date: 20170428
  Serious: Yes (Hospitalization)
  Sender: FDA-Public Use
  Company Number: FR-ASTRAZENECA-2016SE84167

PATIENT
  Age: 23970 Day
  Sex: Male

DRUGS (5)
  1. JANUVIA [Suspect]
     Active Substance: SITAGLIPTIN PHOSPHATE
     Indication: TYPE 2 DIABETES MELLITUS
     Route: 048
  2. CRESTOR [Suspect]
     Active Substance: ROSUVASTATIN CALCIUM
     Indication: PROPHYLAXIS
     Route: 048
     Dates: end: 20160325
  3. METFORMINE [Suspect]
     Active Substance: METFORMIN HYDROCHLORIDE
     Indication: TYPE 2 DIABETES MELLITUS
     Dosage: NON-AZ PRODUCT; 850 MG TWO TIMES A DAY
     Route: 048
  4. KARDEGIC [Suspect]
     Active Substance: ASPIRIN LYSINE
     Route: 048
  5. KENZEN [Suspect]
     Active Substance: CANDESARTAN
     Route: 048

REACTIONS (6)
  - Post procedural pneumonia [Unknown]
  - Pneumothorax [Unknown]
  - Hypoxia [Unknown]
  - Rheumatoid factor increased [Unknown]
  - Intensive care unit acquired weakness [Unknown]
  - Septic shock [Unknown]

NARRATIVE: CASE EVENT DATE: 20160322
